FAERS Safety Report 21666836 (Version 1)
Quarter: 2022Q4

REPORT INFORMATION
  Report Type: Spontaneous
  Country: US (occurrence: None)
  Receive Date: 20221130
  Receipt Date: 20221130
  Transmission Date: 20230112
  Serious: No
  Sender: FDA-Public Use
  Company Number: None

PATIENT
  Age: 69 Year
  Sex: Female

DRUGS (3)
  1. ENBREL [Suspect]
     Active Substance: ETANERCEPT
     Indication: Musculoskeletal disorder
     Dosage: FREQUENCY : WEEKLY;?
     Route: 058
     Dates: start: 202103
  2. ENBREL [Suspect]
     Active Substance: ETANERCEPT
     Indication: Connective tissue disorder
  3. ENBREL [Suspect]
     Active Substance: ETANERCEPT
     Indication: Rheumatoid arthritis

REACTIONS (1)
  - Pneumonia [None]
